FAERS Safety Report 9217454 (Version 1)
Quarter: 2013Q2

REPORT INFORMATION
  Report Type: Spontaneous
  Country: US (occurrence: None)
  Receive Date: 20130405
  Receipt Date: 20130405
  Transmission Date: 20140414
  Serious: Yes (Other)
  Sender: FDA-Public Use
  Company Number: None

PATIENT
  Age: 66 Year
  Sex: Male
  Weight: 69.5 kg

DRUGS (1)
  1. ETANERCEPT [Suspect]
     Dates: start: 20131207

REACTIONS (2)
  - Pneumonia [None]
  - Immunosuppression [None]
